FAERS Safety Report 6442531-9 (Version None)
Quarter: 2009Q4

REPORT INFORMATION
  Report Type: 
  Country: None (occurrence: None)
  Receive Date: 20091112
  Receipt Date: 20091030
  Transmission Date: 20100525
  Serious: Yes (Hospitalization)
  Sender: FDA-Public Use
  Company Number: 8054189

PATIENT
  Age: 71 Year
  Sex: Female
  Weight: 35.2 kg

DRUGS (12)
  1. KEPPRA [Suspect]
     Dosage: PO
     Route: 048
  2. VESICARE [Suspect]
     Dosage: PO
     Route: 048
  3. EFFEXOR [Suspect]
     Dosage: PO
     Route: 048
  4. STESOLID [Suspect]
     Dosage: 5 MG PRN REC
     Route: 054
  5. OXYNORM [Suspect]
     Dosage: PO
     Route: 048
  6. TRAMADOL HCL [Suspect]
     Dosage: PO
     Route: 048
  7. TRAMAGETIC [Suspect]
     Dosage: PO
     Route: 048
  8. ALBYL-E [Concomitant]
  9. SELEXID /00445302/ [Concomitant]
  10. IMODIUM /00384302/ [Concomitant]
  11. SIMVASTATIN [Concomitant]
  12. CALCIGRAN /00434901/ [Concomitant]

REACTIONS (5)
  - AFFECT LABILITY [None]
  - CONFUSIONAL STATE [None]
  - DELIRIUM [None]
  - DISORIENTATION [None]
  - URINARY TRACT INFECTION [None]
